FAERS Safety Report 7630444-6 (Version None)
Quarter: 2011Q3

REPORT INFORMATION
  Report Type: 
  Country: None (occurrence: None)
  Receive Date: 20110722
  Receipt Date: 20110714
  Transmission Date: 20111222
  Serious: Yes (Death)
  Sender: FDA-Public Use
  Company Number: GR-VIIV HEALTHCARE LIMITED-B0734451A

PATIENT
  Age: 48 Year
  Sex: Male

DRUGS (4)
  1. LAMIVUDINE [Suspect]
     Indication: HIV INFECTION
     Route: 065
  2. LOPINAVIR/RITONAVIR [Suspect]
     Indication: HIV INFECTION
     Route: 065
  3. ZIDOVUDINE [Suspect]
     Indication: HIV INFECTION
     Route: 065
  4. DIDANOSINE [Suspect]
     Indication: HIV INFECTION
     Route: 065

REACTIONS (6)
  - PORTAL HYPERTENSION [None]
  - PORTAL HYPERTENSIVE GASTROPATHY [None]
  - ASCITES [None]
  - HEPATIC ENCEPHALOPATHY [None]
  - THROMBOCYTOPENIA [None]
  - GASTRIC HAEMORRHAGE [None]
